FAERS Safety Report 11167156 (Version 1)
Quarter: 2015Q2

REPORT INFORMATION
  Report Type: Spontaneous
  Country: PL (occurrence: None)
  Receive Date: 20150603
  Receipt Date: 20150603
  Transmission Date: 20150821
  Serious: Yes (Hospitalization, Disabling)
  Sender: FDA-Public Use
  Company Number: 2014DEPPL00082

PATIENT
  Age: 22 Year
  Sex: Male
  Weight: 72 kg

DRUGS (13)
  1. DEPOCYT(E) (CYTARABINE) LIPOSOME INJECTABLE SUSPENSION [Suspect]
     Active Substance: CYTARABINE
     Indication: T-CELL LYMPHOMA
     Route: 037
     Dates: start: 20140205, end: 20140910
  2. METHOTREXATE (METHOTREXATE SODIUM) [Concomitant]
     Active Substance: METHOTREXATE SODIUM
  3. DICORTINEFF (FLUDROCORTISONE ACETATE, GRAMICIDIN, NEOMYCIN SULFATE) [Concomitant]
  4. PEG/L-ASPARAGINASE [Concomitant]
     Active Substance: PEGASPARGASE
  5. VINCRISTINE (VINCRISTINE SULFATE) [Concomitant]
     Active Substance: VINCRISTINE SULFATE
  6. ONDANSETRON. [Concomitant]
     Active Substance: ONDANSETRON
  7. FLUCONAZOLE. [Concomitant]
     Active Substance: FLUCONAZOLE
  8. DAUNORUBICIN [Concomitant]
     Active Substance: DAUNORUBICIN
  9. CYTARABINE. [Concomitant]
     Active Substance: CYTARABINE
  10. CYCLOPHOSPHAMIDE. [Concomitant]
     Active Substance: CYCLOPHOSPHAMIDE
  11. PREDIZONE (PREDNISONE ACETATE) [Concomitant]
  12. ACICLOVIR (ACICLOVIR SODIUM) [Concomitant]
  13. ALLOPURINOL. [Concomitant]
     Active Substance: ALLOPURINOL

REACTIONS (9)
  - Hypoaesthesia [None]
  - Dizziness [None]
  - Altered state of consciousness [None]
  - Hypertonia [None]
  - Aphasia [None]
  - Diplopia [None]
  - Headache [None]
  - Urinary incontinence [None]
  - Seizure [None]

NARRATIVE: CASE EVENT DATE: 20140806
